FAERS Safety Report 4821716-9 (Version None)
Quarter: 2005Q4

REPORT INFORMATION
  Report Type: 
  Country: None (occurrence: None)
  Receive Date: 20051103
  Receipt Date: 20051012
  Transmission Date: 20060501
  Serious: Yes (Hospitalization, Other)
  Sender: FDA-Public Use
  Company Number: USA0509109115

PATIENT
  Age: 78 Year
  Sex: Female

DRUGS (2)
  1. EVISTA [Suspect]
     Indication: OSTEOPOROSIS
  2. TAMOXIFEN [Concomitant]

REACTIONS (3)
  - BREAST CANCER [None]
  - BREAST CANCER IN SITU [None]
  - OSTEITIS DEFORMANS [None]
